FAERS Safety Report 5953994-7 (Version None)
Quarter: 2008Q4

REPORT INFORMATION
  Report Type: 
  Country: None (occurrence: None)
  Receive Date: 20081114
  Receipt Date: 20081105
  Transmission Date: 20090506
  Serious: Yes (Other)
  Sender: FDA-Public Use
  Company Number: US-PFIZER INC-2008093881

PATIENT
  Sex: Female
  Weight: 74 kg

DRUGS (4)
  1. LIPITOR [Suspect]
     Route: 048
     Dates: start: 20081001, end: 20081001
  2. ACETYLSALICYLIC ACID SRT [Concomitant]
  3. AMLODIPINE [Concomitant]
  4. SYNTHROID [Concomitant]
     Indication: THYROID DISORDER

REACTIONS (1)
  - WALKING AID USER [None]
